FAERS Safety Report 7464488-4 (Version None)
Quarter: 2011Q2

REPORT INFORMATION
  Report Type: 
  Country: None (occurrence: None)
  Receive Date: 20110509
  Receipt Date: 20110428
  Transmission Date: 20111010
  Serious: Yes (Hospitalization, Other)
  Sender: FDA-Public Use
  Company Number: US-US-EMD SERONO, INC.-7007702

PATIENT
  Sex: Female

DRUGS (3)
  1. REBIF [Suspect]
     Indication: MULTIPLE SCLEROSIS
     Route: 058
     Dates: start: 20091030, end: 20100525
  2. PAXIL [Concomitant]
     Indication: DEPRESSION
     Dates: start: 20000101
  3. ORTHO TRI-CYCLEN [Concomitant]
     Indication: CONTRACEPTION

REACTIONS (4)
  - SEPSIS [None]
  - PERIRECTAL ABSCESS [None]
  - IMMUNOSUPPRESSION [None]
  - WHITE BLOOD CELL COUNT DECREASED [None]
